FAERS Safety Report 9204701 (Version 2)
Quarter: 2013Q2

REPORT INFORMATION
  Report Type: Report from Study
  Country: US (occurrence: US)
  Receive Date: 20130402
  Receipt Date: 20130517
  Transmission Date: 20140414
  Serious: Yes (Hospitalization)
  Sender: FDA-Public Use
  Company Number: US-US-EMD SERONO, INC.-7202245

PATIENT
  Age: 44 Year
  Sex: Female
  Weight: 54 kg

DRUGS (5)
  1. REBIF [Suspect]
     Indication: MULTIPLE SCLEROSIS
     Route: 058
     Dates: start: 20080826
  2. KLONOPIN [Concomitant]
     Indication: PANIC DISORDER
  3. KLONOPIN [Concomitant]
     Indication: ANXIETY DISORDER
  4. ADVIL                              /00109201/ [Concomitant]
     Indication: PREMEDICATION
  5. DIMETAPP                           /00127601/ [Concomitant]
     Indication: HYPERSENSITIVITY

REACTIONS (10)
  - Multiple sclerosis relapse [Recovered/Resolved]
  - Hyperphagia [Unknown]
  - Weight increased [Not Recovered/Not Resolved]
  - Affect lability [Unknown]
  - Hypersensitivity [Unknown]
  - Oesophageal irritation [Not Recovered/Not Resolved]
  - Intervertebral disc degeneration [Not Recovered/Not Resolved]
  - Dysgeusia [Unknown]
  - Malaise [Unknown]
  - Injection site pain [Unknown]
